FAERS Safety Report 20205159 (Version 1)
Quarter: 2021Q4

REPORT INFORMATION
  Report Type: Spontaneous
  Country: US (occurrence: None)
  Receive Date: 20211220
  Receipt Date: 20211220
  Transmission Date: 20220303
  Serious: No
  Sender: FDA-Public Use
  Company Number: US-MDD US Operations-2021SUP00025

PATIENT
  Sex: Male
  Weight: 70.295 kg

DRUGS (7)
  1. OXTELLAR XR [Suspect]
     Active Substance: OXCARBAZEPINE
     Indication: Seizure
     Dosage: 150 MG, 1X/DAY EVERY MORNING ALONG WITH ONE 300 MG TABLET
  2. OXTELLAR XR [Suspect]
     Active Substance: OXCARBAZEPINE
  3. OXTELLAR XR [Suspect]
     Active Substance: OXCARBAZEPINE
     Indication: Seizure
     Dosage: 300 MG, 1X/DAY IN THE MORNING ALONG WITH ONE 150 MG TABLET
  4. OXTELLAR XR [Suspect]
     Active Substance: OXCARBAZEPINE
     Dosage: 600 MG, 1X/DAY IN THE EVENING
  5. OXTELLAR XR [Suspect]
     Active Substance: OXCARBAZEPINE
     Dosage: 300 MG, 1X/DAY IN THE MORNING ALONG WITH ONE 150 MG TABLET
  6. OXTELLAR XR [Suspect]
     Active Substance: OXCARBAZEPINE
     Dosage: 600 MG, 1X/DAY IN THE EVENING
  7. DILANTIN [Concomitant]
     Active Substance: PHENYTOIN
     Dosage: 390 MG, 1X/DAY

REACTIONS (2)
  - Libido decreased [Not Recovered/Not Resolved]
  - Erectile dysfunction [Not Recovered/Not Resolved]
